FAERS Safety Report 24109884 (Version 1)
Quarter: 2024Q3

REPORT INFORMATION
  Report Type: Spontaneous
  Country: LB (occurrence: LB)
  Receive Date: 20240718
  Receipt Date: 20240718
  Transmission Date: 20241016
  Serious: Yes (Death, Other)
  Sender: BRISTOL MYERS SQUIBB
  Company Number: LB-BRISTOL-MYERS SQUIBB COMPANY-2024-111537

PATIENT
  Sex: Male

DRUGS (1)
  1. OPDIVO [Suspect]
     Active Substance: NIVOLUMAB
     Indication: Lung carcinoma cell type unspecified stage II
     Dosage: 240 1 2WK
     Route: 042
     Dates: start: 202405

REACTIONS (1)
  - Death [Fatal]
